FAERS Safety Report 8568256-1 (Version None)
Quarter: 2012Q3

REPORT INFORMATION
  Report Type: 
  Country: None (occurrence: None)
  Receive Date: 20120803
  Receipt Date: 20120718
  Transmission Date: 20120928
  Serious: No
  Sender: FDA-Public Use
  Company Number: US-ABBOTT-12P-163-0957573-00

PATIENT
  Sex: Male
  Weight: 76.726 kg

DRUGS (10)
  1. NIASPAN [Suspect]
     Dosage: FOR 4 TO 5 WEEKS
     Dates: start: 20120201
  2. AMLODIPINE BESYLATE [Concomitant]
     Indication: PRODUCT USED FOR UNKNOWN INDICATION
     Dosage: 5 MG PER DAY
  3. ASCORBIC ACID [Concomitant]
     Indication: PRODUCT USED FOR UNKNOWN INDICATION
  4. NIASPAN [Suspect]
     Indication: BLOOD CHOLESTEROL INCREASED
     Dosage: 2 TABLET IN AM AND 1 IN PM
     Dates: start: 20100101, end: 20111101
  5. SULFASALAZINE [Suspect]
     Indication: RHEUMATOID ARTHRITIS
  6. FOLIC ACID [Concomitant]
     Indication: PRODUCT USED FOR UNKNOWN INDICATION
     Dosage: 1MG DAILY
  7. METHOTREXATE [Concomitant]
     Indication: PRODUCT USED FOR UNKNOWN INDICATION
     Dosage: 1 X A WEEK ON SUNDAY MORNINGS 20MG
  8. NIASPAN [Suspect]
     Dosage: 2 TABLETS
     Dates: start: 20120101
  9. NIASPAN [Suspect]
  10. CENTRUM SILVER FOR MEN [Concomitant]
     Indication: PRODUCT USED FOR UNKNOWN INDICATION

REACTIONS (9)
  - RHEUMATOID ARTHRITIS [None]
  - ERYTHEMA [None]
  - MALAISE [None]
  - ARTHRALGIA [None]
  - FLUSHING [None]
  - JOINT SWELLING [None]
  - PRURITUS [None]
  - HYPERSENSITIVITY [None]
  - ANKLE FRACTURE [None]
